FAERS Safety Report 4607701-0 (Version None)
Quarter: 2005Q1

REPORT INFORMATION
  Report Type: 
  Country: None (occurrence: None)
  Receive Date: 20050309
  Receipt Date: 20050218
  Transmission Date: 20050727
  Serious: Yes (Death, Life-Threatening, Hospitalization)
  Sender: FDA-Public Use
  Company Number: JP_050105650

PATIENT
  Age: 74 Year
  Sex: Female
  Weight: 58 kg

DRUGS (10)
  1. EXAL (VINBLASTINE SULFATE) [Suspect]
     Indication: HODGKIN'S DISEASE
     Dosage: 9 MG OTHER
     Route: 050
     Dates: start: 20040827, end: 20041122
  2. BLEOMYCIN [Concomitant]
  3. ADRIACIN (COXORUBICIN HYDROCHLORIDE) [Concomitant]
  4. DACARBAZINE [Concomitant]
  5. DECADRON [Concomitant]
  6. KYTRIL [Concomitant]
  7. MAGLAX (MAGNESIUM OXIDE) [Concomitant]
  8. GASTROM (ECABET MONOSODIUM) [Concomitant]
  9. LEVOTHYROXINE SODIUM [Concomitant]
  10. PREDNISOLONE [Concomitant]

REACTIONS (6)
  - BLOOD PH DECREASED [None]
  - DRUG EFFECT DECREASED [None]
  - DYSPNOEA [None]
  - GENERAL PHYSICAL HEALTH DETERIORATION [None]
  - PNEUMONITIS [None]
  - PYREXIA [None]
